FAERS Safety Report 9419681 (Version 1)
Quarter: 2013Q3

REPORT INFORMATION
  Report Type: Spontaneous
  Country: US (occurrence: US)
  Receive Date: 20130725
  Receipt Date: 20130725
  Transmission Date: 20140515
  Serious: Yes (Other)
  Sender: FDA-Public Use
  Company Number: PHHY2013US078220

PATIENT
  Age: 38 Year
  Sex: Female

DRUGS (1)
  1. METHYLPHENIDATE [Suspect]
     Indication: NERVOUS SYSTEM DISORDER
     Dosage: 5 MG, BID

REACTIONS (1)
  - Ventricular tachycardia [Unknown]
